FAERS Safety Report 8886010 (Version 1)
Quarter: 2012Q4

REPORT INFORMATION
  Report Type: 
  Country: US (occurrence: US)
  Receive Date: 20121105
  Receipt Date: 20121105
  Transmission Date: 20130627
  Serious: Yes (Other)
  Sender: FDA-Public Use
  Company Number: US-009507513-1211USA001233

PATIENT
  Sex: Female

DRUGS (3)
  1. PEG-INTRON [Suspect]
     Indication: HEPATITIS C
     Dosage: UNK
     Dates: start: 20120203, end: 20120801
  2. RIBAVIRIN [Suspect]
     Indication: HEPATITIS C
     Dosage: UNK
     Dates: start: 20120203, end: 20120801
  3. VICTRELIS [Suspect]
     Indication: HEPATITIS C
     Dosage: UNK
     Dates: start: 20120302, end: 20120801

REACTIONS (10)
  - Hyperthyroidism [Unknown]
  - Insomnia [Not Recovered/Not Resolved]
  - Goitre [Unknown]
  - Uterine leiomyoma [Unknown]
  - Arthralgia [Unknown]
  - Red blood cell count decreased [Not Recovered/Not Resolved]
  - Iron deficiency [Not Recovered/Not Resolved]
  - Arthritis [Not Recovered/Not Resolved]
  - No therapeutic response [Unknown]
  - White blood cell count decreased [Not Recovered/Not Resolved]
